FAERS Safety Report 14586062 (Version 1)
Quarter: 2018Q1

REPORT INFORMATION
  Report Type: Report from Study
  Country: IT (occurrence: IT)
  Receive Date: 20180301
  Receipt Date: 20180301
  Transmission Date: 20180509
  Serious: Yes (Hospitalization)
  Sender: FDA-Public Use
  Company Number: IT-BAYER-2018-034877

PATIENT
  Age: 79 Year
  Sex: Female

DRUGS (9)
  1. ATORVASTATIN [Concomitant]
     Active Substance: ATORVASTATIN
     Dosage: UNK
  2. LANSOPRAZOLE. [Concomitant]
     Active Substance: LANSOPRAZOLE
     Dosage: UNK
  3. DOXAZOSIN [Concomitant]
     Active Substance: DOXAZOSIN\DOXAZOSIN MESYLATE
     Dosage: UNK
  4. HUMALOG [Concomitant]
     Active Substance: INSULIN LISPRO
     Dosage: UNK
  5. CARDIOASPIRIN [Suspect]
     Active Substance: ASPIRIN
     Indication: CORONARY ARTERY BYPASS
     Dosage: 1 DF, QD
  6. RANEXA [Concomitant]
     Active Substance: RANOLAZINE
     Dosage: UNK
  7. BISOPROLOL FUMARATE. [Concomitant]
     Active Substance: BISOPROLOL FUMARATE
     Dosage: UNK
  8. LASIX [Concomitant]
     Active Substance: FUROSEMIDE
     Dosage: UNK
  9. LANTUS [Concomitant]
     Active Substance: INSULIN GLARGINE
     Dosage: UNK

REACTIONS (1)
  - Anaemia [Not Recovered/Not Resolved]

NARRATIVE: CASE EVENT DATE: 20180125
